FAERS Safety Report 5171569-7 (Version None)
Quarter: 2006Q4

REPORT INFORMATION
  Report Type: 
  Country: None (occurrence: None)
  Receive Date: 20061213
  Receipt Date: 20060206
  Transmission Date: 20070319
  Serious: Yes (Other)
  Sender: FDA-Public Use
  Company Number: US-AMGEN-US167799

PATIENT
  Sex: Female
  Weight: 62.2 kg

DRUGS (6)
  1. ENBREL [Suspect]
     Indication: RHEUMATOID ARTHRITIS
     Route: 058
     Dates: start: 20040701, end: 20051001
  2. METHOTREXATE [Concomitant]
     Dates: start: 20050801, end: 20051101
  3. FOLIC ACID [Concomitant]
     Dates: start: 20050801, end: 20051001
  4. RANITIDINE [Concomitant]
     Dates: start: 20040101
  5. LISINOPRIL [Concomitant]
     Dates: start: 20030101
  6. PREDNISONE TAB [Concomitant]
     Dates: start: 20040101

REACTIONS (1)
  - B-CELL LYMPHOMA [None]
